FAERS Safety Report 7684246-5 (Version None)
Quarter: 2011Q3

REPORT INFORMATION
  Report Type: 
  Country: None (occurrence: None)
  Receive Date: 20110815
  Receipt Date: 20110802
  Transmission Date: 20111222
  Serious: Yes (Disabling)
  Sender: FDA-Public Use
  Company Number: CA-US-EMD SERONO, INC.-7074861

PATIENT
  Sex: Female

DRUGS (6)
  1. VENTOLIN HFA [Concomitant]
  2. COLACE [Concomitant]
  3. REBIF [Suspect]
     Indication: RELAPSING-REMITTING MULTIPLE SCLEROSIS
     Route: 058
     Dates: start: 20090807, end: 20110101
  4. REBIF [Suspect]
     Route: 058
     Dates: start: 20110301
  5. CALCIUM CARBONATE [Concomitant]
  6. FERROUS SULFATE TAB [Concomitant]

REACTIONS (6)
  - INFLUENZA LIKE ILLNESS [None]
  - ABASIA [None]
  - INJECTION SITE REACTION [None]
  - CATHETER SITE PAIN [None]
  - INAPPROPRIATE SCHEDULE OF DRUG ADMINISTRATION [None]
  - URINARY TRACT INFECTION [None]
